FAERS Safety Report 10152561 (Version 1)
Quarter: 2014Q2

REPORT INFORMATION
  Report Type: Spontaneous
  Country: US (occurrence: None)
  Receive Date: 20140502
  Receipt Date: 20140502
  Transmission Date: 20141212
  Serious: Yes (Other)
  Sender: FDA-Public Use
  Company Number: None

PATIENT
  Age: 31 Year
  Sex: Female

DRUGS (7)
  1. ONDANSETRON [Suspect]
  2. TOPAMAX [Concomitant]
  3. ADVAIR [Concomitant]
  4. OMEPRAZOLE [Concomitant]
  5. ZYRTEC [Concomitant]
  6. CLARITIN [Concomitant]
  7. NASONEX [Concomitant]

REACTIONS (4)
  - Migraine [None]
  - Poor quality sleep [None]
  - Pain [None]
  - Product formulation issue [None]
